FAERS Safety Report 7483913-6 (Version None)
Quarter: 2011Q2

REPORT INFORMATION
  Report Type: 
  Country: None (occurrence: None)
  Receive Date: 20110517
  Receipt Date: 20110323
  Transmission Date: 20111010
  Serious: Yes (Life-Threatening, Hospitalization)
  Sender: FDA-Public Use
  Company Number: JP-AMGEN-JPNCT2010008250

PATIENT
  Age: 41 Year
  Sex: Female
  Weight: 45 kg

DRUGS (23)
  1. DEXART [Concomitant]
     Route: 042
  2. TALION [Concomitant]
     Route: 048
  3. GASLON N [Concomitant]
     Indication: STOMATITIS
     Route: 048
  4. URSO 250 [Concomitant]
     Route: 048
  5. DEXART [Concomitant]
     Route: 042
  6. DIFLAL [Concomitant]
     Route: 062
  7. GLYCYRON [Concomitant]
     Route: 048
  8. CORTICOSTEROIDS [Concomitant]
     Indication: PROPHYLAXIS
     Route: 065
  9. MAGNESIUM SULFATE [Concomitant]
  10. VECTIBIX [Suspect]
     Indication: COLORECTAL CANCER
     Dosage: 6 MG/KG, Q2WK
     Route: 041
     Dates: start: 20101104, end: 20101118
  11. VECTIBIX [Suspect]
     Dosage: 4.8 MG/KG, Q2WK
     Route: 041
     Dates: start: 20101216, end: 20101216
  12. FLUOROURACIL [Suspect]
     Indication: COLORECTAL CANCER
     Route: 041
     Dates: start: 20101104, end: 20101216
  13. ALOXI [Concomitant]
     Route: 042
  14. EMEND [Concomitant]
     Route: 048
  15. RABEPRAZOLE SODIUM [Concomitant]
     Route: 048
  16. LEUCOVORIN CALCIUM [Suspect]
     Indication: COLORECTAL CANCER
     Dosage: 200 MG/M2, Q2WK
     Route: 041
     Dates: start: 20101104, end: 20101216
  17. IRINOTECAN HCL [Suspect]
     Indication: COLORECTAL CANCER
     Dosage: 150 MG/M2, Q2WK
     Route: 041
     Dates: start: 20101104, end: 20101216
  18. ELENTAL [Concomitant]
     Route: 048
  19. ANTIHISTAMINES [Concomitant]
     Indication: PROPHYLAXIS
     Route: 065
  20. DEXART [Concomitant]
  21. MAGNESIUM SULFATE [Concomitant]
     Dosage: 2 UNK, UNK
     Route: 042
  22. MINOMYCIN [Concomitant]
     Route: 048
  23. HACHIAZULE [Concomitant]
     Route: 049

REACTIONS (6)
  - DRY SKIN [None]
  - HYPOCALCAEMIA [None]
  - STOMATITIS [None]
  - ELECTROCARDIOGRAM QT PROLONGED [None]
  - HYPOMAGNESAEMIA [None]
  - SKIN FISSURES [None]
